APPROVED DRUG PRODUCT: SODIUM IODIDE I 131
Active Ingredient: SODIUM IODIDE I-131
Strength: 250-1000mCi
Dosage Form/Route: SOLUTION;ORAL
Application: A209166 | Product #001 | TE Code: AA
Applicant: INTERNATIONAL ISOTOPES INC
Approved: Feb 5, 2020 | RLD: No | RS: No | Type: RX